FAERS Safety Report 12145946 (Version 1)
Quarter: 2016Q1

REPORT INFORMATION
  Report Type: Spontaneous
  Country: US (occurrence: US)
  Receive Date: 20160304
  Receipt Date: 20160304
  Transmission Date: 20160526
  Serious: Yes (Life-Threatening, Hospitalization)
  Sender: FDA-Public Use
  Company Number: US-UNITED THERAPEUTICS-UNT-2016-003253

PATIENT
  Age: 51 Year
  Sex: Female
  Weight: 111.57 kg

DRUGS (1)
  1. ORENITRAM [Suspect]
     Active Substance: TREPROSTINIL
     Indication: PULMONARY HYPERTENSION
     Dosage: 0.25 MG, BID
     Route: 048
     Dates: start: 20150629

REACTIONS (1)
  - Respiratory failure [Unknown]

NARRATIVE: CASE EVENT DATE: 20160222
